FAERS Safety Report 18628604 (Version 1)
Quarter: 2020Q4

REPORT INFORMATION
  Report Type: Spontaneous
  Country: DE (occurrence: DE)
  Receive Date: 20201217
  Receipt Date: 20201217
  Transmission Date: 20210114
  Serious: Yes (Other)
  Sender: FDA-Public Use
  Company Number: DE-TEVA-2020-DE-1858476

PATIENT
  Sex: Female

DRUGS (1)
  1. AJOVY [Suspect]
     Active Substance: FREMANEZUMAB-VFRM
     Dosage: INJECTED FOR THE FIRST TIME, TOLERATED IT WELL AT FIRST
     Route: 058

REACTIONS (2)
  - Arrhythmia [Not Recovered/Not Resolved]
  - Rash [Not Recovered/Not Resolved]
